FAERS Safety Report 18315427 (Version 1)
Quarter: 2020Q3

REPORT INFORMATION
  Report Type: Spontaneous
  Country: US (occurrence: US)
  Receive Date: 20200926
  Receipt Date: 20200926
  Transmission Date: 20201103
  Serious: No
  Sender: FDA-Public Use
  Company Number: US-009507513-2009USA008576

PATIENT
  Sex: Female

DRUGS (9)
  1. PRINIVIL [Suspect]
     Active Substance: LISINOPRIL
  2. AVASTIN (SIMVASTATIN) [Suspect]
     Active Substance: SIMVASTATIN
     Indication: PRODUCT USED FOR UNKNOWN INDICATION
     Route: 065
  3. CYMBALTA [Suspect]
     Active Substance: DULOXETINE HYDROCHLORIDE
     Route: 065
  4. XELODA [Concomitant]
     Active Substance: CAPECITABINE
  5. TUCATINIB [Suspect]
     Active Substance: TUCATINIB
     Dosage: UNK
     Route: 048
  6. ZOCOR [Suspect]
     Active Substance: SIMVASTATIN
     Route: 048
  7. HERCEPTIN [Concomitant]
     Active Substance: TRASTUZUMAB
  8. TUCATINIB [Suspect]
     Active Substance: TUCATINIB
     Indication: BREAST CANCER FEMALE
     Dosage: UNK, BID WITH FOOD
     Route: 048
  9. TUCATINIB [Suspect]
     Active Substance: TUCATINIB
     Dosage: 300MG IN THE AM AND 150MG IN THE PM
     Route: 048

REACTIONS (33)
  - Fungal infection [Unknown]
  - Urinary tract infection [Unknown]
  - Rash [Unknown]
  - Cystitis [Unknown]
  - Arthropod bite [Unknown]
  - Gait disturbance [Unknown]
  - Diarrhoea [Unknown]
  - Blood pressure increased [Unknown]
  - Night sweats [Unknown]
  - Dysgeusia [Unknown]
  - Unevaluable event [Unknown]
  - Platelet count decreased [Unknown]
  - Gastrointestinal disorder [Unknown]
  - Dry eye [Unknown]
  - Neuralgia [Unknown]
  - Drug interaction [Unknown]
  - Pain [Unknown]
  - Vitamin D abnormal [Unknown]
  - Nausea [Unknown]
  - Abdominal pain upper [Unknown]
  - Dehydration [Unknown]
  - Haemorrhoids [Unknown]
  - Fatigue [Unknown]
  - Vitamin D decreased [Unknown]
  - Ulcer [Unknown]
  - Stomatitis [Unknown]
  - Pain in extremity [Unknown]
  - Headache [Unknown]
  - Abdominal pain lower [Unknown]
  - Balance disorder [Unknown]
  - Abdominal pain [Unknown]
  - Pruritus [Unknown]
  - Taste disorder [Unknown]
